FAERS Safety Report 5988379-0 (Version None)
Quarter: 2008Q4

REPORT INFORMATION
  Report Type: 
  Country: None (occurrence: None)
  Receive Date: 20081210
  Receipt Date: 20081201
  Transmission Date: 20090506
  Serious: Yes (Hospitalization, Disabling, Other)
  Sender: FDA-Public Use
  Company Number: US-PURDUE-USA_2007_0030831

PATIENT
  Age: 47 Year
  Sex: Female
  Weight: 63 kg

DRUGS (4)
  1. OXYCONTIN [Suspect]
     Indication: BACK PAIN
     Dosage: 20 MG, Q12H
     Route: 048
     Dates: end: 20020422
  2. XANAX [Concomitant]
     Indication: DRUG USE FOR UNKNOWN INDICATION
     Dosage: UNK MG, UNK
     Route: 048
  3. PREMARIN                           /01218301/ [Concomitant]
     Indication: MENOPAUSE
  4. OXYIR [Concomitant]
     Indication: PAIN
     Dosage: 1 TABLET, Q6H

REACTIONS (13)
  - ANXIETY [None]
  - DISABILITY [None]
  - DRUG ABUSE [None]
  - DRUG DEPENDENCE [None]
  - DRUG EFFECT INCREASED [None]
  - DRUG WITHDRAWAL SYNDROME [None]
  - HOSPITALISATION [None]
  - INADEQUATE ANALGESIA [None]
  - INAPPROPRIATE SCHEDULE OF DRUG ADMINISTRATION [None]
  - INJURY [None]
  - MALAISE [None]
  - MENTAL DISORDER [None]
  - PAIN [None]
